FAERS Safety Report 5936284-8 (Version None)
Quarter: 2008Q4

REPORT INFORMATION
  Report Type: 
  Country: None (occurrence: None)
  Receive Date: 20081030
  Receipt Date: 20081020
  Transmission Date: 20090506
  Serious: Yes (Hospitalization)
  Sender: FDA-Public Use
  Company Number: AU-EISAI MEDIAL RESEARCH-E3810-02090-SPO-AU

PATIENT
  Sex: Male

DRUGS (4)
  1. E3810 (RABEPRAZOLE) [Suspect]
     Indication: DYSPEPSIA
     Route: 048
  2. LIPITOR [Concomitant]
  3. ASPIRIN [Concomitant]
  4. LEXAPRO [Concomitant]

REACTIONS (1)
  - CORONARY ARTERY DISEASE [None]
